FAERS Safety Report 7029816-2 (Version None)
Quarter: 2010Q4

REPORT INFORMATION
  Report Type: 
  Country: None (occurrence: None)
  Receive Date: 20101006
  Receipt Date: 20100927
  Transmission Date: 20110411
  Serious: Yes (Hospitalization)
  Sender: FDA-Public Use
  Company Number: US-BIOGENIDEC-2010BI033568

PATIENT
  Age: 40 Year
  Sex: Female

DRUGS (1)
  1. TYSABRI [Suspect]
     Indication: MULTIPLE SCLEROSIS
     Route: 042
     Dates: start: 20060918

REACTIONS (7)
  - ARTHRALGIA [None]
  - DIABETES MELLITUS [None]
  - FALL [None]
  - JOINT INJURY [None]
  - JOINT SPRAIN [None]
  - OPTIC NERVE DISORDER [None]
  - ORTHOSTATIC HYPERTENSION [None]
